FAERS Safety Report 20101131 (Version 1)
Quarter: 2021Q4

REPORT INFORMATION
  Report Type: Spontaneous
  Country: US (occurrence: None)
  Receive Date: 20211122
  Receipt Date: 20211122
  Transmission Date: 20220304
  Serious: No
  Sender: FDA-Public Use
  Company Number: None

PATIENT
  Age: 51 Year
  Sex: Female
  Weight: 80.1 kg

DRUGS (2)
  1. BAMLANIVIMAB\ETESEVIMAB [Suspect]
     Active Substance: BAMLANIVIMAB\ETESEVIMAB
     Indication: COVID-19
     Dosage: OTHER FREQUENCY : ONE TIME ONLY;?
     Route: 040
     Dates: start: 20211120, end: 20211120
  2. ETESEVIMAB [Suspect]
     Active Substance: ETESEVIMAB
     Indication: COVID-19
     Dosage: OTHER FREQUENCY : ONE TIME ONLY;?
     Route: 040

REACTIONS (6)
  - Dyspnoea [None]
  - Chest discomfort [None]
  - Flushing [None]
  - Hyperhidrosis [None]
  - Pain in extremity [None]
  - Infusion related reaction [None]

NARRATIVE: CASE EVENT DATE: 20211120
